FAERS Safety Report 6154360-4 (Version None)
Quarter: 2009Q2

REPORT INFORMATION
  Report Type: 
  Country: None (occurrence: None)
  Receive Date: 20090414
  Receipt Date: 20090403
  Transmission Date: 20091009
  Serious: Yes (Other)
  Sender: FDA-Public Use
  Company Number: PHHY2009TR12698

PATIENT
  Age: 53 Year
  Sex: Female

DRUGS (1)
  1. MIACALCIN [Suspect]
     Dosage: 200 IU, QD
     Route: 045

REACTIONS (2)
  - DEAFNESS [None]
  - MIDDLE EAR INFLAMMATION [None]
